FAERS Safety Report 21788391 (Version 1)
Quarter: 2022Q4

REPORT INFORMATION
  Report Type: Spontaneous
  Country: None (occurrence: US)
  Receive Date: 20221228
  Receipt Date: 20221228
  Transmission Date: 20230113
  Serious: No
  Sender: FDA-Public Use
  Company Number: US-STI Pharma LLC-2136227

PATIENT
  Age: 81 Year
  Sex: Male

DRUGS (4)
  1. ETHAMBUTOL HYDROCHLORIDE [Suspect]
     Active Substance: ETHAMBUTOL HYDROCHLORIDE
  2. AZITHROMYCIN [Concomitant]
     Active Substance: AZITHROMYCIN
  3. RIFAMPIN [Concomitant]
     Active Substance: RIFAMPIN
  4. AMIKACIN [Concomitant]
     Active Substance: AMIKACIN
     Route: 045

REACTIONS (1)
  - Disease recurrence [Unknown]
